FAERS Safety Report 9306806 (Version 2)
Quarter: 2013Q2

REPORT INFORMATION
  Report Type: Spontaneous
  Country: US (occurrence: None)
  Receive Date: 20130322
  Receipt Date: 20130408
  Transmission Date: 20140414
  Serious: Yes (Other)
  Sender: FDA-Public Use
  Company Number: AUR-APL-2013-01517

PATIENT
  Age: 61 Year
  Sex: Male

DRUGS (2)
  1. CITALOPRAM [Suspect]
     Indication: DEPRESSION
     Route: 048
     Dates: start: 201211
  2. CITALOPRAM [Suspect]
     Indication: ANXIETY
     Route: 048
     Dates: start: 201211

REACTIONS (9)
  - Drug withdrawal syndrome [None]
  - Feeling abnormal [None]
  - Drug ineffective [None]
  - Product quality issue [None]
  - Insomnia [None]
  - Anxiety [None]
  - Depression [None]
  - Nervous system disorder [None]
  - Product substitution issue [None]
